FAERS Safety Report 12631903 (Version 2)
Quarter: 2016Q3

REPORT INFORMATION
  Report Type: Spontaneous
  Country: US (occurrence: US)
  Receive Date: 20160808
  Receipt Date: 20160808
  Transmission Date: 20161109
  Serious: No
  Sender: FDA-Public Use
  Company Number: US-BEH-2016061389

PATIENT
  Sex: Male
  Weight: 88 kg

DRUGS (23)
  1. PRED FORTE [Concomitant]
     Active Substance: PREDNISOLONE ACETATE
  2. PSEUDOEPHEDRINE [Concomitant]
     Active Substance: PSEUDOEPHEDRINE
  3. TAMSULOSIN [Concomitant]
     Active Substance: TAMSULOSIN
  4. NAPROXEN. [Concomitant]
     Active Substance: NAPROXEN
  5. VALACICLOVIR [Concomitant]
     Active Substance: VALACYCLOVIR HYDROCHLORIDE
  6. ACETAMINOPHEN. [Concomitant]
     Active Substance: ACETAMINOPHEN
  7. MELATONIN [Concomitant]
     Active Substance: MELATONIN
  8. PROLENSA [Concomitant]
     Active Substance: BROMFENAC SODIUM
  9. EPIPEN [Concomitant]
     Active Substance: EPINEPHRINE
  10. SIMVASTATIN. [Concomitant]
     Active Substance: SIMVASTATIN
  11. VITAMIN C [Concomitant]
     Active Substance: ASCORBIC ACID
  12. ROPINIROLE. [Concomitant]
     Active Substance: ROPINIROLE
  13. GATIFLOXACIN. [Concomitant]
     Active Substance: GATIFLOXACIN
  14. PATANASE [Concomitant]
     Active Substance: OLOPATADINE HYDROCHLORIDE
  15. CITALOPRAM [Concomitant]
     Active Substance: CITALOPRAM HYDROBROMIDE
  16. ECHINACEA [Concomitant]
     Active Substance: ECHINACEA, UNSPECIFIED
  17. TIMOLOL MALEATE. [Concomitant]
     Active Substance: TIMOLOL MALEATE
  18. HIZENTRA [Suspect]
     Active Substance: HUMAN IMMUNOGLOBULIN G
     Indication: IMMUNODEFICIENCY
     Route: 058
     Dates: start: 20150713
  19. VITAMIN D [Concomitant]
     Active Substance: CHOLECALCIFEROL
  20. GUAIFENESIN. [Concomitant]
     Active Substance: GUAIFENESIN
  21. LIDOCAINE/PRILOCAINE [Concomitant]
     Active Substance: LIDOCAINE\PRILOCAINE
  22. AMLODIPINE [Concomitant]
     Active Substance: AMLODIPINE BESYLATE
  23. OTHER ANTI-ASTHMATICS, INHALANTS [Concomitant]

REACTIONS (3)
  - Influenza [Unknown]
  - Sinusitis [Unknown]
  - Nasopharyngitis [Unknown]
